FAERS Safety Report 17091003 (Version 3)
Quarter: 2025Q2

REPORT INFORMATION
  Report Type: Spontaneous
  Country: US (occurrence: US)
  Receive Date: 20191129
  Receipt Date: 20250624
  Transmission Date: 20250717
  Serious: Yes (Other)
  Sender: AUROBINDO
  Company Number: US-AUROBINDO-AUR-APL-2019-074580

PATIENT
  Age: 65 Year
  Sex: Female

DRUGS (16)
  1. TOPIRAMATE [Suspect]
     Active Substance: TOPIRAMATE
     Indication: Back pain
     Route: 065
  2. TOPIRAMATE [Suspect]
     Active Substance: TOPIRAMATE
     Route: 065
  3. TOPIRAMATE [Suspect]
     Active Substance: TOPIRAMATE
     Route: 065
  4. TOPIRAMATE [Suspect]
     Active Substance: TOPIRAMATE
     Route: 065
  5. LIDOCAINE [Concomitant]
     Active Substance: LIDOCAINE
     Indication: Back pain
     Route: 008
  6. LIDOCAINE [Concomitant]
     Active Substance: LIDOCAINE
     Route: 008
  7. LIDOCAINE [Concomitant]
     Active Substance: LIDOCAINE
     Route: 008
  8. LIDOCAINE [Concomitant]
     Active Substance: LIDOCAINE
     Route: 008
  9. METHYLPREDNISOLONE [Concomitant]
     Active Substance: METHYLPREDNISOLONE
     Indication: Back pain
     Route: 008
  10. METHYLPREDNISOLONE [Concomitant]
     Active Substance: METHYLPREDNISOLONE
     Route: 008
  11. METHYLPREDNISOLONE [Concomitant]
     Active Substance: METHYLPREDNISOLONE
     Route: 008
  12. METHYLPREDNISOLONE [Concomitant]
     Active Substance: METHYLPREDNISOLONE
     Route: 008
  13. OMNIPAQUE [Concomitant]
     Active Substance: IOHEXOL
     Indication: Back pain
     Route: 042
  14. OMNIPAQUE [Concomitant]
     Active Substance: IOHEXOL
     Route: 042
  15. OMNIPAQUE [Concomitant]
     Active Substance: IOHEXOL
     Route: 042
  16. OMNIPAQUE [Concomitant]
     Active Substance: IOHEXOL
     Route: 042

REACTIONS (4)
  - Drug dependence [Unknown]
  - Withdrawal syndrome [Recovered/Resolved]
  - Tremor [Recovered/Resolved]
  - Myalgia [Recovered/Resolved]
